FAERS Safety Report 4665405-2 (Version None)
Quarter: 2005Q2

REPORT INFORMATION
  Report Type: 
  Country: None (occurrence: None)
  Receive Date: 20050517
  Receipt Date: 20050517
  Transmission Date: 20051028
  Serious: No
  Sender: FDA-Public Use
  Company Number: None

PATIENT
  Age: 75 Year
  Sex: Female
  Weight: 75 kg

DRUGS (2)
  1. KETEK [Suspect]
     Indication: BRONCHITIS
     Dosage: 400 MG QD X 5 DA
     Dates: start: 20050307, end: 20050311
  2. COUMADIN [Concomitant]

REACTIONS (2)
  - CONTUSION [None]
  - PROTHROMBIN TIME PROLONGED [None]
